FAERS Safety Report 14001827 (Version 1)
Quarter: 2017Q3

REPORT INFORMATION
  Report Type: Spontaneous
  Country: FR (occurrence: FR)
  Receive Date: 20170922
  Receipt Date: 20170922
  Transmission Date: 20171128
  Serious: Yes (Other)
  Sender: FDA-Public Use
  Company Number: FR-MERCK KGAA-2027393

PATIENT
  Sex: Female

DRUGS (1)
  1. NOVOTHYROX [Suspect]
     Active Substance: LEVOTHYROXINE SODIUM
     Indication: PRODUCT USED FOR UNKNOWN INDICATION

REACTIONS (8)
  - Arthralgia [None]
  - Cardiac disorder [None]
  - Balance disorder [None]
  - Myalgia [None]
  - Diabetes mellitus [None]
  - Blood triglycerides abnormal [None]
  - Headache [None]
  - Blood thyroid stimulating hormone increased [None]
